FAERS Safety Report 10062977 (Version 2)
Quarter: 2014Q3

REPORT INFORMATION
  Report Type: Spontaneous
  Country: IT (occurrence: IT)
  Receive Date: 20140407
  Receipt Date: 20140703
  Transmission Date: 20150326
  Serious: Yes (Other)
  Sender: FDA-Public Use
  Company Number: IT-BRISTOL-MYERS SQUIBB COMPANY-20578589

PATIENT
  Age: 68 Year
  Sex: Male

DRUGS (2)
  1. AULIN [Suspect]
     Active Substance: NIMESULIDE
     Indication: ARTHRALGIA
     Dosage: INTERRUPTED ON 18FEB2014
     Route: 048
     Dates: start: 20140214
  2. COUMADIN [Suspect]
     Active Substance: WARFARIN SODIUM
     Route: 048
     Dates: start: 20020101, end: 20140218

REACTIONS (2)
  - Subcutaneous haematoma [Unknown]
  - Drug interaction [Unknown]

NARRATIVE: CASE EVENT DATE: 20140215
